FAERS Safety Report 9369273 (Version 1)
Quarter: 2013Q2

REPORT INFORMATION
  Report Type: Spontaneous
  Country: US (occurrence: US)
  Receive Date: 20130626
  Receipt Date: 20130626
  Transmission Date: 20140414
  Serious: Yes (Hospitalization)
  Sender: FDA-Public Use
  Company Number: US-SANOFI-AVENTIS-2013SA063215

PATIENT
  Age: 49 Year
  Sex: Female
  Weight: 134.7 kg

DRUGS (14)
  1. GLIMEPIRIDE [Suspect]
     Indication: DIABETES MELLITUS
     Route: 048
     Dates: start: 2009
  2. PLAQUENIL [Suspect]
     Indication: SYSTEMIC LUPUS ERYTHEMATOSUS
     Route: 048
     Dates: start: 2010
  3. CELLCEPT [Suspect]
     Indication: NEPHRITIS
     Route: 048
     Dates: start: 2010
  4. PREDNISONE [Suspect]
     Indication: SYSTEMIC LUPUS ERYTHEMATOSUS
     Route: 048
     Dates: start: 2010
  5. METFORMIN [Suspect]
     Indication: DIABETES MELLITUS
     Route: 048
     Dates: start: 2009
  6. BLINDED THERAPY [Suspect]
     Indication: SYSTEMIC LUPUS ERYTHEMATOSUS
     Route: 058
     Dates: start: 20130403, end: 20130612
  7. NEURONTIN [Concomitant]
     Indication: NEUROPATHY PERIPHERAL
     Dates: start: 2010
  8. COUMADIN [Concomitant]
     Indication: ANTICOAGULANT THERAPY
     Dates: start: 2009
  9. LOSARTAN [Concomitant]
     Indication: HYPERTENSION
     Dates: start: 2009
  10. AMBIEN [Concomitant]
     Indication: INSOMNIA
     Dates: start: 2009
  11. POTASSIUM [Concomitant]
     Indication: NUTRITIONAL SUPPLEMENTATION
     Dates: start: 2010
  12. CARDIZEM [Concomitant]
     Indication: HYPERTENSION
     Dates: start: 2011
  13. HYDROCHLOROTHIAZIDE [Concomitant]
     Indication: HYPERTENSION
     Dates: start: 2010
  14. LORCET [Concomitant]
     Indication: PAIN
     Dates: start: 2010

REACTIONS (1)
  - Sepsis [Not Recovered/Not Resolved]
